FAERS Safety Report 5796001-1 (Version None)
Quarter: 2008Q3

REPORT INFORMATION
  Report Type: 
  Country: None (occurrence: None)
  Receive Date: 20080701
  Receipt Date: 20080617
  Transmission Date: 20090109
  Serious: Yes (Other)
  Sender: FDA-Public Use
  Company Number: FI-ROCHE-568686

PATIENT
  Age: 62 Year
  Sex: Female

DRUGS (2)
  1. XELODA [Suspect]
     Indication: RECTAL CANCER
     Route: 048
  2. UNSPECIFIED MEDICATION [Concomitant]
     Indication: ARTERIOSCLEROSIS OBLITERANS

REACTIONS (1)
  - MACULAR DEGENERATION [None]
